FAERS Safety Report 5207502-9 (Version None)
Quarter: 2007Q1

REPORT INFORMATION
  Report Type: 
  Country: None (occurrence: None)
  Receive Date: 20070112
  Receipt Date: 20070109
  Transmission Date: 20070707
  Serious: Yes (Hospitalization)
  Sender: FDA-Public Use
  Company Number: US-ROXANE LABORATORIES, INC-2007-DE-00138GD

PATIENT
  Age: 45 Year
  Sex: Male

DRUGS (5)
  1. IBUPROFEN [Suspect]
  2. NAPROXEN [Suspect]
  3. PREDNISONE TAB [Suspect]
     Indication: RENAL TRANSPLANT
  4. ALKA-SELTZER [Suspect]
  5. INDOMETHACIN [Suspect]
     Indication: GOUT

REACTIONS (4)
  - ABDOMINAL PAIN UPPER [None]
  - FAECES DISCOLOURED [None]
  - GASTROINTESTINAL FISTULA [None]
  - HAEMATEMESIS [None]
